FAERS Safety Report 8037904-7 (Version None)
Quarter: 2012Q1

REPORT INFORMATION
  Report Type: 
  Country: None (occurrence: None)
  Receive Date: 20120111
  Receipt Date: 20120109
  Transmission Date: 20120608
  Serious: Yes (Hospitalization, Other)
  Sender: FDA-Public Use
  Company Number: FR-ABBOTT-12P-056-0889100-00

PATIENT
  Sex: Female

DRUGS (9)
  1. PENTACARINAT [Concomitant]
     Indication: PRODUCT USED FOR UNKNOWN INDICATION
     Dates: start: 20090201
  2. WELVONE [Concomitant]
     Indication: PRODUCT USED FOR UNKNOWN INDICATION
     Dates: start: 20101227
  3. TRUVADA [Concomitant]
     Indication: PRODUCT USED FOR UNKNOWN INDICATION
  4. NORVIR [Suspect]
     Indication: HIV INFECTION
     Route: 048
     Dates: start: 20090201, end: 20101101
  5. NORVIR [Suspect]
     Dates: start: 20101220
  6. CLINDAMYCIN HCL [Suspect]
     Indication: PRODUCT USED FOR UNKNOWN INDICATION
     Dates: start: 20090201, end: 20101227
  7. PYRIMETHAMINE TAB [Suspect]
     Indication: PRODUCT USED FOR UNKNOWN INDICATION
     Dates: start: 20090201, end: 20101227
  8. REYATAZ [Suspect]
     Indication: HIV INFECTION
     Dates: start: 20090201, end: 20101101
  9. REYATAZ [Suspect]
     Dates: start: 20101220

REACTIONS (8)
  - FOLATE DEFICIENCY [None]
  - PYREXIA [None]
  - PANCYTOPENIA [None]
  - TRANSAMINASES INCREASED [None]
  - HYPERBILIRUBINAEMIA [None]
  - WEIGHT DECREASED [None]
  - DYSPEPSIA [None]
  - JAUNDICE [None]
